FAERS Safety Report 24668554 (Version 1)
Quarter: 2024Q4

REPORT INFORMATION
  Report Type: Spontaneous
  Country: PL (occurrence: PL)
  Receive Date: 20241127
  Receipt Date: 20241127
  Transmission Date: 20250115
  Serious: Yes (Hospitalization)
  Sender: NOVARTIS
  Company Number: PL-002147023-NVSC2024PL223918

PATIENT
  Age: 39 Year
  Sex: Male

DRUGS (1)
  1. KESIMPTA [Suspect]
     Active Substance: OFATUMUMAB
     Indication: Multiple sclerosis
     Dosage: UNK
     Route: 065
     Dates: start: 202303

REACTIONS (6)
  - Bell^s palsy [Unknown]
  - Visual acuity reduced [Recovering/Resolving]
  - Diplopia [Recovering/Resolving]
  - Paraesthesia [Not Recovered/Not Resolved]
  - Spinal cord neoplasm [Unknown]
  - Gait disturbance [Unknown]

NARRATIVE: CASE EVENT DATE: 20231201
